FAERS Safety Report 14007103 (Version 1)
Quarter: 2017Q3

REPORT INFORMATION
  Report Type: Spontaneous
  Country: US (occurrence: US)
  Receive Date: 20170923
  Receipt Date: 20170923
  Transmission Date: 20171128
  Serious: Yes (Hospitalization)
  Sender: FDA-Public Use
  Company Number: None

PATIENT
  Age: 31 Year
  Sex: Male
  Weight: 74 kg

DRUGS (1)
  1. BUPROPRION [Suspect]
     Active Substance: BUPROPION
     Indication: PRESCRIPTION DRUG USED WITHOUT A PRESCRIPTION

REACTIONS (3)
  - Wrong technique in product usage process [None]
  - Thrombophlebitis septic [None]
  - Drug abuse [None]

NARRATIVE: CASE EVENT DATE: 20170921
